FAERS Safety Report 5958009-2 (Version None)
Quarter: 2008Q4

REPORT INFORMATION
  Report Type: 
  Country: None (occurrence: None)
  Receive Date: 20081119
  Receipt Date: 20081110
  Transmission Date: 20090506
  Serious: Yes (Other)
  Sender: FDA-Public Use
  Company Number: PHHY2008BE28184

PATIENT
  Sex: Male

DRUGS (11)
  1. LEPONEX [Suspect]
     Indication: PSYCHOTIC DISORDER
     Dosage: 25 MG DAILY
     Dates: start: 20071129, end: 20071204
  2. LEPONEX [Suspect]
     Dosage: 50 - 300 MG DAILY
     Dates: start: 20071205, end: 20071212
  3. LEPONEX [Suspect]
     Dosage: 200 MG DAILY
     Dates: start: 20071213, end: 20071217
  4. LEPONEX [Suspect]
     Dosage: 25 MG DAILY
     Dates: start: 20071226, end: 20071227
  5. LEPONEX [Suspect]
     Dosage: 50 MG DAILY
     Dates: start: 20080128, end: 20080129
  6. LEPONEX [Suspect]
     Dosage: 175 - 125 MG DAILY
     Dates: start: 20080130, end: 20080211
  7. LEPONEX [Suspect]
     Dosage: 75 - 50 MG DAILY
     Dates: start: 20080212, end: 20080213
  8. ENTUMIN [Concomitant]
     Dosage: 80 MG DAILY
     Dates: start: 20071112, end: 20080318
  9. IMPROMEN [Concomitant]
     Dosage: 200 MG DAILY
     Dates: start: 20071120, end: 20071213
  10. SOLIAN [Concomitant]
     Dosage: 1000 MG DAILY
     Dates: start: 20071112, end: 20080211
  11. ABILIFY [Concomitant]
     Dosage: 15 MG DAILY

REACTIONS (2)
  - EOSINOPHILIA [None]
  - PSYCHOTIC DISORDER [None]
